FAERS Safety Report 19404824 (Version 1)
Quarter: 2021Q2

REPORT INFORMATION
  Report Type: Spontaneous
  Country: US (occurrence: US)
  Receive Date: 20210611
  Receipt Date: 20210611
  Transmission Date: 20210717
  Serious: Yes (Other)
  Sender: FDA-Public Use
  Company Number: US-STRIDES ARCOLAB LIMITED-2021SP003879

PATIENT
  Age: 83 Year
  Sex: Female

DRUGS (1)
  1. PREDNISOLONE. [Suspect]
     Active Substance: PREDNISOLONE
     Indication: PEMPHIGOID
     Dosage: UNK, THREE COURSES OF PREDNISOLONE TAPER (RECEIVED OVER 8 WEEKS)
     Route: 065

REACTIONS (1)
  - Treatment failure [Unknown]
